FAERS Safety Report 24622707 (Version 2)
Quarter: 2024Q4

REPORT INFORMATION
  Report Type: Spontaneous
  Country: EC (occurrence: EC)
  Receive Date: 20241115
  Receipt Date: 20241219
  Transmission Date: 20250114
  Serious: Yes (Other)
  Sender: BOEHRINGER INGELHEIM
  Company Number: EC-BoehringerIngelheim-2024-BI-061806

PATIENT
  Age: 82 Year
  Sex: Female
  Weight: 57 kg

DRUGS (1)
  1. OLODATEROL HYDROCHLORIDE\TIOTROPIUM BROMIDE MONOHYDRATE [Suspect]
     Active Substance: OLODATEROL HYDROCHLORIDE\TIOTROPIUM BROMIDE MONOHYDRATE
     Indication: COVID-19
     Dosage: 2.5/2.5 MCG
     Route: 048
     Dates: start: 2022

REACTIONS (7)
  - Drug ineffective [Not Recovered/Not Resolved]
  - Off label use [Unknown]
  - Product quality issue [Unknown]
  - Dyspnoea [Not Recovered/Not Resolved]
  - Product quality issue [Unknown]
  - Fatigue [Unknown]
  - Speech disorder [Unknown]

NARRATIVE: CASE EVENT DATE: 20220101
